FAERS Safety Report 13414725 (Version 3)
Quarter: 2017Q2

REPORT INFORMATION
  Report Type: Spontaneous
  Country: DE (occurrence: DE)
  Receive Date: 20170406
  Receipt Date: 20170515
  Transmission Date: 20170830
  Serious: Yes (Death, Life-Threatening, Disabling)
  Sender: FDA-Public Use
  Company Number: DE-TEVA-754656GER

PATIENT
  Age: 76 Year
  Sex: Male
  Weight: 78 kg

DRUGS (3)
  1. HEPARIN-NATRIUM-25 000-RATIOPHARM [Suspect]
     Active Substance: HEPARIN SODIUM
     Dosage: AT 9.30PM; IN HLM (HEART LUNG MACHINE)
     Dates: start: 20170222
  2. HEPARIN-NATRIUM-25 000-RATIOPHARM [Suspect]
     Active Substance: HEPARIN SODIUM
     Dosage: AT 6.35PM
     Route: 042
     Dates: start: 20170222
  3. HEPARIN-NATRIUM-25 000-RATIOPHARM [Suspect]
     Active Substance: HEPARIN SODIUM
     Dosage: AT 7PM; IN HLM (HEART LUNG MACHINE)
     Dates: start: 20170222

REACTIONS (6)
  - Cardiac failure [Fatal]
  - Multiple organ dysfunction syndrome [Fatal]
  - Drug effect incomplete [Unknown]
  - Cardiogenic shock [Unknown]
  - Sepsis [Fatal]
  - Coagulation time shortened [Unknown]

NARRATIVE: CASE EVENT DATE: 20170222
